FAERS Safety Report 17076371 (Version 1)
Quarter: 2019Q4

REPORT INFORMATION
  Report Type: Spontaneous
  Country: FR (occurrence: FR)
  Receive Date: 20191126
  Receipt Date: 20191126
  Transmission Date: 20200122
  Serious: Yes (Other)
  Sender: FDA-Public Use
  Company Number: FR-MYLANLABS-2019M1114170

PATIENT
  Age: 12 Year
  Sex: Female
  Weight: 32 kg

DRUGS (3)
  1. TRIDESONIT [Suspect]
     Active Substance: DESONIDE
     Indication: GUTTATE PSORIASIS
     Dosage: NON QUANTIFIABLE
     Route: 003
     Dates: start: 2018
  2. BETNEVAL NEOMYCINE [Suspect]
     Active Substance: BETAMETHASONE\NEOMYCIN
     Indication: GUTTATE PSORIASIS
     Dosage: NON QUANTIFIABLE
     Route: 003
     Dates: start: 2018
  3. PREDNISONE. [Suspect]
     Active Substance: PREDNISONE
     Indication: PEMPHIGUS
     Dosage: 1 MILLIGRAM/KILOGRAM, QD
     Route: 048
     Dates: start: 20190901

REACTIONS (2)
  - Adrenal insufficiency [Recovering/Resolving]
  - Steroid diabetes [Recovering/Resolving]

NARRATIVE: CASE EVENT DATE: 20190525
